FAERS Safety Report 9683433 (Version 1)
Quarter: 2013Q4

REPORT INFORMATION
  Report Type: Spontaneous
  Country: US (occurrence: US)
  Receive Date: 20131112
  Receipt Date: 20131112
  Transmission Date: 20140711
  Serious: No
  Sender: FDA-Public Use
  Company Number: US-B.I. PHARMACEUTICALS,INC./RIDGEFIELD-2013-BI-34998BP

PATIENT
  Age: 43 Year
  Sex: Female
  Weight: 75 kg

DRUGS (5)
  1. COMBIVENT [Suspect]
     Indication: ASTHMA
     Dosage: STRENGTH: 20 MCG / 100 MCG; DAILY DOSE: 80MCG/400MCG
     Route: 055
     Dates: start: 201308
  2. BUSPAR [Concomitant]
     Indication: ANXIETY
     Dosage: 30 MG
     Route: 048
     Dates: start: 2008
  3. DILAUDID [Concomitant]
     Indication: BACK PAIN
     Dosage: 24 MG
     Route: 048
     Dates: start: 2011
  4. OXYCONTIN [Concomitant]
     Indication: BACK PAIN
     Dosage: 60 MG
     Route: 048
     Dates: start: 2011
  5. PROAIR [Concomitant]
     Indication: ASTHMA
     Route: 055
     Dates: start: 2000

REACTIONS (1)
  - Off label use [Not Recovered/Not Resolved]
